FAERS Safety Report 4940727-6 (Version None)
Quarter: 2006Q1

REPORT INFORMATION
  Report Type: 
  Country: None (occurrence: None)
  Receive Date: 20060307
  Receipt Date: 20060228
  Transmission Date: 20060701
  Serious: Yes (Death)
  Sender: FDA-Public Use
  Company Number: TCI2006A00680

PATIENT
  Age: 50 Year
  Sex: Male

DRUGS (3)
  1. LANSAP 800 (LANSOPRAZOLE, CLARITHROMYCIN, AMOXICILLIN) (PREPARATION FO [Suspect]
     Indication: HELICOBACTER INFECTION
     Dosage: 1 CARD (0.5 CARD, 2 IN 1 D)
     Route: 048
  2. TATHION (GLUTATHIONE) [Concomitant]
  3. PREDNIZOLON (PREDNISOLONE) [Concomitant]

REACTIONS (1)
  - INTERSTITIAL LUNG DISEASE [None]
